FAERS Safety Report 13301753 (Version 1)
Quarter: 2017Q1

REPORT INFORMATION
  Report Type: Spontaneous
  Country: US (occurrence: US)
  Receive Date: 20170306
  Receipt Date: 20170306
  Transmission Date: 20170428
  Serious: No
  Sender: FDA-Public Use
  Company Number: None

PATIENT
  Sex: Female

DRUGS (1)
  1. CAPECITABINE 500 MG ACCORD [Suspect]
     Active Substance: CAPECITABINE
     Dosage: 2500 MG QAM AND 2000 MG QPM 14 DAYS ON PO
     Route: 048
     Dates: start: 20160126, end: 20170303

REACTIONS (2)
  - Skin disorder [None]
  - Skin exfoliation [None]
